FAERS Safety Report 9803249 (Version 1)
Quarter: 2014Q1

REPORT INFORMATION
  Report Type: Spontaneous
  Country: US (occurrence: None)
  Receive Date: 20140102
  Receipt Date: 20140102
  Transmission Date: 20141002
  Serious: No
  Sender: FDA-Public Use
  Company Number: LIT-13-0055-W

PATIENT
  Age: 33 Year
  Sex: Male
  Weight: 150 kg

DRUGS (1)
  1. METOPROLOL [Suspect]
     Indication: HYPERTENSION

REACTIONS (2)
  - Angioedema [None]
  - Odynophagia [None]
